FAERS Safety Report 24771575 (Version 3)
Quarter: 2025Q1

REPORT INFORMATION
  Report Type: Spontaneous
  Country: CO (occurrence: CO)
  Receive Date: 20241224
  Receipt Date: 20250224
  Transmission Date: 20250409
  Serious: Yes (Hospitalization, Other)
  Sender: REGENERON
  Company Number: CO-SA-2024SA376499

PATIENT
  Age: 77 Year
  Sex: Female

DRUGS (1)
  1. PRALUENT [Suspect]
     Active Substance: ALIROCUMAB
     Indication: Type IIa hyperlipidaemia
     Dosage: 75 MG, QOW
     Route: 058
     Dates: start: 2018

REACTIONS (7)
  - Myocardial infarction [Unknown]
  - Blood glucose abnormal [Unknown]
  - Post procedural complication [Unknown]
  - Skin ulcer [Unknown]
  - Burning sensation [Unknown]
  - Pain in extremity [Unknown]
  - Varicose vein [Unknown]

NARRATIVE: CASE EVENT DATE: 20241001
